FAERS Safety Report 4341904-8 (Version None)
Quarter: 2004Q2

REPORT INFORMATION
  Report Type: 
  Country: None (occurrence: None)
  Receive Date: 20040420
  Receipt Date: 20040415
  Transmission Date: 20050107
  Serious: Yes (Death, Hospitalization)
  Sender: FDA-Public Use
  Company Number: DE-BRISTOL-MYERS SQUIBB COMPANY-12564852

PATIENT
  Age: 77 Year
  Sex: Male

DRUGS (6)
  1. METFORMIN HCL [Suspect]
     Indication: DIABETES MELLITUS NON-INSULIN-DEPENDENT
     Dosage: ^DOSE LEVEL 1^ THEN DOSE CHANGED TO ^DOSE LEVEL 2^ ON 21-DEC-2001
     Route: 048
     Dates: start: 20011207
  2. PENTALONG [Concomitant]
  3. ALLOPURINOL [Concomitant]
  4. OSSOFORTIN [Concomitant]
  5. CORDANUM [Concomitant]
  6. CAPTOHEXAL [Concomitant]

REACTIONS (2)
  - CARDIAC FAILURE [None]
  - DEATH [None]
